FAERS Safety Report 23392161 (Version 3)
Quarter: 2024Q2

REPORT INFORMATION
  Report Type: Spontaneous
  Country: US (occurrence: US)
  Receive Date: 20240111
  Receipt Date: 20240403
  Transmission Date: 20240716
  Serious: No
  Sender: FDA-Public Use
  Company Number: US-PFIZER INC-202300384857

PATIENT
  Age: 90 Year
  Sex: Female

DRUGS (2)
  1. IBRANCE [Suspect]
     Active Substance: PALBOCICLIB
     Dosage: 75 MG
  2. IBRANCE [Suspect]
     Active Substance: PALBOCICLIB
     Dosage: TAKE IT FOR 17 DAYS STRAIGHT, THEN GO 11 DAYS OFF

REACTIONS (6)
  - Renal disorder [Unknown]
  - Inappropriate schedule of product administration [Unknown]
  - Product dose omission issue [Unknown]
  - Off label use [Unknown]
  - Influenza [Unknown]
  - Cough [Unknown]

NARRATIVE: CASE EVENT DATE: 20231110
